FAERS Safety Report 7569097-4 (Version None)
Quarter: 2011Q2

REPORT INFORMATION
  Report Type: 
  Country: None (occurrence: None)
  Receive Date: 20110623
  Receipt Date: 20110617
  Transmission Date: 20111010
  Serious: Yes (Hospitalization, Other)
  Sender: FDA-Public Use
  Company Number: US-ABBOTT-11P-163-0719921-00

PATIENT
  Sex: Female
  Weight: 65.83 kg

DRUGS (9)
  1. CENTRUM VITAMIN [Concomitant]
     Indication: VITAMIN SUPPLEMENTATION
  2. NEXIUM [Concomitant]
     Indication: GASTROOESOPHAGEAL REFLUX DISEASE
  3. METHOTREXATE [Concomitant]
     Indication: RHEUMATOID ARTHRITIS
  4. VITAMIN E [Concomitant]
     Indication: VITAMIN SUPPLEMENTATION
  5. PREDNISONE [Concomitant]
     Indication: ARTHROPATHY
     Dates: end: 20110507
  6. ADVIL LIQUI-GELS [Concomitant]
     Indication: PAIN
  7. HUMIRA [Suspect]
     Indication: RHEUMATOID ARTHRITIS
     Dates: start: 20100201
  8. FOLIC ACID [Concomitant]
     Indication: VITAMIN SUPPLEMENTATION
  9. VITAMIN D [Concomitant]
     Indication: VITAMIN SUPPLEMENTATION

REACTIONS (10)
  - CHOLECYSTITIS [None]
  - INJECTION SITE NODULE [None]
  - INJECTION SITE PAIN [None]
  - BLOOD CHOLESTEROL ABNORMAL [None]
  - CHRONIC HEPATITIS [None]
  - INJECTION SITE HAEMORRHAGE [None]
  - WRONG TECHNIQUE IN DRUG USAGE PROCESS [None]
  - JOINT SWELLING [None]
  - INJECTION SITE EXTRAVASATION [None]
  - HEPATIC STEATOSIS [None]
